FAERS Safety Report 6371182-X (Version None)
Quarter: 2009Q3

REPORT INFORMATION
  Report Type: 
  Country: None (occurrence: None)
  Receive Date: 20090923
  Receipt Date: 20070627
  Transmission Date: 20100115
  Serious: Yes (Other)
  Sender: FDA-Public Use
  Company Number: US-ASTRAZENECA-2006UW27671

PATIENT
  Age: 13918 Day
  Sex: Female
  Weight: 83.9 kg

DRUGS (12)
  1. SEROQUEL [Suspect]
     Indication: DEPRESSION
     Route: 048
     Dates: start: 19970101
  2. SEROQUEL [Suspect]
     Indication: ANXIETY
     Route: 048
     Dates: start: 19970101
  3. SEROQUEL [Suspect]
     Indication: MOOD SWINGS
     Route: 048
     Dates: start: 19970101
  4. SEROQUEL [Suspect]
     Dosage: 100 MG - 1000 MG
     Route: 048
     Dates: start: 20020612
  5. SEROQUEL [Suspect]
     Dosage: 100 MG - 1000 MG
     Route: 048
     Dates: start: 20020612
  6. SEROQUEL [Suspect]
     Dosage: 100 MG - 1000 MG
     Route: 048
     Dates: start: 20020612
  7. SINGULAIR [Concomitant]
  8. ATIVAN [Concomitant]
  9. TRAZODONE [Concomitant]
     Dosage: 100 MG - 200 MG
  10. DEPAKOTE [Concomitant]
  11. XANAX [Concomitant]
     Dosage: 1 MG - 2 MG AS REQUIRED
  12. AMBIEN [Concomitant]

REACTIONS (3)
  - DIABETES MELLITUS [None]
  - DIABETES MELLITUS INADEQUATE CONTROL [None]
  - TYPE 2 DIABETES MELLITUS [None]
